FAERS Safety Report 5290590-1 (Version None)
Quarter: 2007Q2

REPORT INFORMATION
  Report Type: 
  Country: None (occurrence: None)
  Receive Date: 20070405
  Receipt Date: 20070405
  Transmission Date: 20071010
  Serious: Yes (Hospitalization)
  Sender: FDA-Public Use
  Company Number: None

PATIENT
  Age: 56 Year
  Sex: Female
  Weight: 51.82 kg

DRUGS (11)
  1. INSULIN [Suspect]
     Dosage: SQ (SLIDING SCALE)
     Route: 058
  2. ASPIRIN [Concomitant]
  3. CLOPIDOGREL [Concomitant]
  4. NIACIN [Concomitant]
  5. FENOFIBRATE [Concomitant]
  6. OMEPRAZOLE [Concomitant]
  7. FUROSEMIDE [Concomitant]
  8. POTASSIUM ACETATE [Concomitant]
  9. DOCUSATE [Concomitant]
  10. LOSARTAN POSTASSIUM [Concomitant]
  11. DICYCLOMIN [Concomitant]

REACTIONS (8)
  - ABDOMINAL DISTENSION [None]
  - ASTHENIA [None]
  - BLOOD GLUCOSE INCREASED [None]
  - EATING DISORDER [None]
  - HYPOGLYCAEMIA [None]
  - MALAISE [None]
  - ORAL INTAKE REDUCED [None]
  - SOMNOLENCE [None]
